FAERS Safety Report 7282595-6 (Version None)
Quarter: 2011Q1

REPORT INFORMATION
  Report Type: 
  Country: None (occurrence: None)
  Receive Date: 20110209
  Receipt Date: 20110207
  Transmission Date: 20110831
  Serious: Yes (Other)
  Sender: FDA-Public Use
  Company Number: US-PFIZER INC-2011027277

PATIENT
  Sex: Female
  Weight: 83 kg

DRUGS (9)
  1. CHANTIX [Suspect]
     Indication: SMOKING CESSATION THERAPY
     Dosage: 0.5 MG, DAILY
     Route: 048
     Dates: start: 20110101
  2. DIVALPROEX [Concomitant]
     Dosage: 250 MG, 2X/DAY
  3. LUNESTA [Concomitant]
     Dosage: 200 MG, DAILY
  4. LIPITOR [Concomitant]
     Dosage: 20 MG, DAILY
  5. DETROL [Concomitant]
     Indication: BLADDER DISORDER
     Dosage: 1 MG, 2X/DAY
  6. IBUPROFEN [Concomitant]
     Dosage: 800 MG, UNK
     Route: 048
  7. FENOFIBRATE [Concomitant]
     Dosage: 150 MG, DAILY
  8. LITHIUM CARBONATE [Concomitant]
     Dosage: 300 MG, 2X/DAY
  9. HYDROCODONE [Concomitant]
     Indication: BACK PAIN
     Dosage: 500 MG, 3X/DAY
     Route: 048

REACTIONS (1)
  - DYSPNOEA [None]
